FAERS Safety Report 8108762 (Version 12)
Quarter: 2014Q3

REPORT INFORMATION
  Report Type: Spontaneous
  Country: US (occurrence: US)
  Receive Date: 20110816
  Receipt Date: 20140715
  Transmission Date: 20150326
  Serious: Yes (Hospitalization, Disabling, Other)
  Sender: FDA-Public Use
  Company Number: US-009507513-2011SP014621

PATIENT
  Sex: Female
  Weight: 86.18 kg

DRUGS (10)
  1. KEPPRA [Concomitant]
     Active Substance: LEVETIRACETAM
     Indication: MIGRAINE
     Dosage: 1500 MG, QD
     Dates: start: 200809
  2. AXERT [Concomitant]
     Active Substance: ALMOTRIPTAN MALATE
     Indication: MIGRAINE
     Dosage: UNK UNK, PRN
     Dates: start: 200809
  3. ZANAFLEX [Concomitant]
     Active Substance: TIZANIDINE HYDROCHLORIDE
     Indication: MIGRAINE
     Dosage: UNK UNK, QD
     Dates: start: 200809
  4. ACETAMINOPHEN (+) HYDROCODONE BITARTRATE [Concomitant]
     Active Substance: ACETAMINOPHEN\HYDROCODONE
     Indication: MIGRAINE
     Dosage: UNK UNK, PRN
  5. SKELAXIN [Concomitant]
     Active Substance: METAXALONE
     Indication: MIGRAINE
     Dosage: UNK UNK, QD
     Dates: start: 200809
  6. NUVARING [Suspect]
     Active Substance: ETHINYL ESTRADIOL\ETONOGESTREL
     Indication: MIGRAINE
     Route: 067
     Dates: start: 2008, end: 20090426
  7. NUVARING [Suspect]
     Active Substance: ETHINYL ESTRADIOL\ETONOGESTREL
     Indication: CONTRACEPTION
  8. DIAMOX SEQUELS [Concomitant]
     Active Substance: ACETAZOLAMIDE
     Indication: MIGRAINE
     Dosage: UNK UNK, QD
  9. XANAX [Concomitant]
     Active Substance: ALPRAZOLAM
     Indication: MIGRAINE
     Dosage: UNK UNK, PRN
     Dates: start: 200809
  10. LOVENOX [Suspect]
     Active Substance: ENOXAPARIN SODIUM
     Indication: PULMONARY EMBOLISM

REACTIONS (38)
  - Pneumonia [Unknown]
  - Sinus bradycardia [Unknown]
  - Pulmonary embolism [Recovered/Resolved]
  - Blood potassium abnormal [Unknown]
  - Blood triglycerides increased [Unknown]
  - Syncope [Not Recovered/Not Resolved]
  - Sinus disorder [Unknown]
  - Contusion [Unknown]
  - Deep vein thrombosis [Unknown]
  - Haematemesis [Unknown]
  - Migraine [Recovered/Resolved]
  - Pain in extremity [Recovered/Resolved]
  - Speech disorder [Unknown]
  - Dizziness [Unknown]
  - Dyspnoea [Unknown]
  - Neck pain [Not Recovered/Not Resolved]
  - Genital infection fungal [Unknown]
  - Paraesthesia [Unknown]
  - Confusional state [Unknown]
  - Nausea [Unknown]
  - Endometriosis [Unknown]
  - Menstruation irregular [Unknown]
  - Presyncope [Unknown]
  - Deep vein thrombosis [Unknown]
  - Chest pain [Unknown]
  - Malaise [Unknown]
  - Off label use [Unknown]
  - Fatigue [Unknown]
  - Headache [Recovered/Resolved]
  - Polycystic ovaries [Unknown]
  - Dyspnoea [Not Recovered/Not Resolved]
  - Hypotension [Unknown]
  - Chest pain [Recovered/Resolved]
  - Head injury [Unknown]
  - Hemiparesis [Unknown]
  - Chest discomfort [Unknown]
  - Oedema [Unknown]
  - Pain in extremity [Unknown]

NARRATIVE: CASE EVENT DATE: 200809
